FAERS Safety Report 12673133 (Version 1)
Quarter: 2016Q3

REPORT INFORMATION
  Report Type: Other
  Country: US (occurrence: US)
  Receive Date: 20160822
  Receipt Date: 20160822
  Transmission Date: 20161109
  Serious: Yes (Hospitalization)
  Sender: FDA-Public Use
  Company Number: US-WARNER CHILCOTT, LLC-1056591

PATIENT
  Age: 77 Year
  Sex: Female

DRUGS (9)
  1. BUSPAR [Concomitant]
     Active Substance: BUSPIRONE HYDROCHLORIDE
  2. MOBIC [Concomitant]
     Active Substance: MELOXICAM
  3. LIPITOR [Concomitant]
     Active Substance: ATORVASTATIN CALCIUM
  4. SYNTHROID [Concomitant]
     Active Substance: LEVOTHYROXINE SODIUM
  5. EVISTA [Concomitant]
     Active Substance: RALOXIFENE HYDROCHLORIDE
  6. VIOXX [Concomitant]
     Active Substance: ROFECOXIB
  7. ASPIRIN. [Concomitant]
     Active Substance: ASPIRIN
  8. ACTONEL [Suspect]
     Active Substance: RISEDRONATE SODIUM
     Indication: OSTEOPOROSIS
     Route: 048
     Dates: start: 20041021, end: 201012
  9. FISH OIL [Concomitant]
     Active Substance: FISH OIL

REACTIONS (8)
  - Low turnover osteopathy [Unknown]
  - Gait disturbance [Unknown]
  - Limb asymmetry [Unknown]
  - Groin pain [Unknown]
  - Femur fracture [Unknown]
  - Pain in extremity [Unknown]
  - Atypical femur fracture [Unknown]
  - Stress fracture [Unknown]

NARRATIVE: CASE EVENT DATE: 201010
